FAERS Safety Report 24967942 (Version 2)
Quarter: 2025Q1

REPORT INFORMATION
  Report Type: Spontaneous
  Country: US (occurrence: US)
  Receive Date: 20250214
  Receipt Date: 20250310
  Transmission Date: 20250408
  Serious: No
  Sender: Unknown Manufacturer
  Company Number: US-MTPC-MTPA2025-0002891

PATIENT
  Age: 64 Year
  Sex: Male

DRUGS (2)
  1. RADICAVA ORS [Suspect]
     Active Substance: EDARAVONE
     Indication: Product used for unknown indication
     Route: 065
  2. RADICAVA ORS [Suspect]
     Active Substance: EDARAVONE
     Indication: Product used for unknown indication
     Route: 065

REACTIONS (1)
  - Speech disorder [Unknown]

NARRATIVE: CASE EVENT DATE: 20250212
